FAERS Safety Report 10061606 (Version 2)
Quarter: 2014Q2

REPORT INFORMATION
  Report Type: Spontaneous
  Country: TR (occurrence: TR)
  Receive Date: 20140407
  Receipt Date: 20140509
  Transmission Date: 20141212
  Serious: Yes (Other)
  Sender: FDA-Public Use
  Company Number: TR-VERTEX PHARMACEUTICALS INC-2014-001791

PATIENT
  Age: 55 Year
  Sex: Male

DRUGS (6)
  1. INCIVO [Suspect]
     Route: 048
  2. INCIVO [Suspect]
     Indication: CHRONIC HEPATITIS C
     Route: 048
  3. INCIVO [Suspect]
     Indication: HEPATITIS C
     Route: 048
  4. RIBAVIRIN [Suspect]
     Indication: CHRONIC HEPATITIS C
     Dosage: UNK
     Route: 065
  5. RIBAVIRIN [Suspect]
     Dosage: DOSAGE FORM: UNKNOWN
  6. PEGINTERFERON ALFA [Suspect]
     Indication: CHRONIC HEPATITIS C

REACTIONS (2)
  - Leukopenia [Unknown]
  - Thrombocytopenia [Unknown]
